FAERS Safety Report 19718334 (Version 7)
Quarter: 2022Q2

REPORT INFORMATION
  Report Type: Report from Study
  Country: AU (occurrence: None)
  Receive Date: 20210818
  Receipt Date: 20220526
  Transmission Date: 20220720
  Serious: Yes (Hospitalization)
  Sender: FDA-Public Use
  Company Number: AU-EISAI MEDICAL RESEARCH-EC-2021-097920

PATIENT
  Age: 65 Year
  Sex: Male
  Weight: 57.45 kg

DRUGS (9)
  1. LENVATINIB [Suspect]
     Active Substance: LENVATINIB
     Indication: Squamous cell carcinoma of head and neck
     Dosage: STARTING DOSE AT 20 MG FLUCTUATED DOSAGE
     Route: 048
     Dates: start: 20210520, end: 20210702
  2. LENVATINIB [Suspect]
     Active Substance: LENVATINIB
     Route: 048
     Dates: start: 20210721, end: 20210805
  3. PEMBROLIZUMAB [Suspect]
     Active Substance: PEMBROLIZUMAB
     Indication: Squamous cell carcinoma of head and neck
     Route: 041
     Dates: start: 20210520, end: 20210630
  4. PEMBROLIZUMAB [Suspect]
     Active Substance: PEMBROLIZUMAB
     Route: 041
     Dates: start: 20210721, end: 20210721
  5. BISOPROLOL [Concomitant]
     Active Substance: BISOPROLOL
     Dates: start: 202104
  6. ALLOPURINOL [Concomitant]
     Active Substance: ALLOPURINOL
     Dates: start: 202104
  7. LERCANIDIPINE HYDROCHLORIDE [Concomitant]
     Active Substance: LERCANIDIPINE HYDROCHLORIDE
     Dates: start: 20210529
  8. VALDOXAN [Concomitant]
     Active Substance: AGOMELATINE
     Dates: start: 202104
  9. XYLOCAINE [Concomitant]
     Active Substance: LIDOCAINE HYDROCHLORIDE
     Dates: start: 20210624

REACTIONS (1)
  - Pneumonia [Not Recovered/Not Resolved]

NARRATIVE: CASE EVENT DATE: 20210811
